FAERS Safety Report 14967854 (Version 3)
Quarter: 2018Q3

REPORT INFORMATION
  Report Type: Spontaneous
  Country: US (occurrence: US)
  Receive Date: 20180604
  Receipt Date: 20180925
  Transmission Date: 20181010
  Serious: Yes (Hospitalization)
  Sender: FDA-Public Use
  Company Number: US-PFIZER INC-2018225170

PATIENT
  Age: 78 Year
  Sex: Female
  Weight: 72.56 kg

DRUGS (4)
  1. IBRANCE [Suspect]
     Active Substance: PALBOCICLIB
     Dosage: 125 MG, CYCLIC (ONE TIME A DAY FOR 21 DAYS)
  2. LETROZOLE. [Suspect]
     Active Substance: LETROZOLE
     Indication: BREAST CANCER FEMALE
     Dosage: UNK, 1X/DAY (2.5 X 1 DAY)
     Dates: start: 201706
  3. BIOTIN [Concomitant]
     Active Substance: BIOTIN
     Dosage: UNK, (5000)
     Dates: start: 201806
  4. IBRANCE [Suspect]
     Active Substance: PALBOCICLIB
     Indication: BREAST CANCER FEMALE
     Dosage: UNK, 1X/DAY, (125 X 1 DAY)
     Dates: start: 201708

REACTIONS (7)
  - Nasopharyngitis [Unknown]
  - Drug dose omission [Unknown]
  - Cardiac failure congestive [Unknown]
  - Pneumonia [Unknown]
  - Sepsis [Unknown]
  - Onychoclasis [Not Recovered/Not Resolved]
  - Alopecia [Not Recovered/Not Resolved]

NARRATIVE: CASE EVENT DATE: 201710
